FAERS Safety Report 8417645-4 (Version None)
Quarter: 2012Q2

REPORT INFORMATION
  Report Type: 
  Country: None (occurrence: None)
  Receive Date: 20120606
  Receipt Date: 20120525
  Transmission Date: 20120825
  Serious: No
  Sender: FDA-Public Use
  Company Number: US-B.I. PHARMACEUTICALS,INC./RIDGEFIELD-2012-BP-12417BP

PATIENT
  Sex: Female

DRUGS (2)
  1. ANTIHYPERTENSIVE MEDICATIONS [Concomitant]
  2. ZANTAC 150 [Suspect]
     Indication: DYSPEPSIA
     Dosage: 300 MG
     Route: 048
     Dates: start: 20120422, end: 20120522

REACTIONS (1)
  - BLOOD PRESSURE INCREASED [None]
